FAERS Safety Report 5121394-8 (Version None)
Quarter: 2006Q4

REPORT INFORMATION
  Report Type: 
  Country: None (occurrence: None)
  Receive Date: 20061002
  Receipt Date: 20060918
  Transmission Date: 20070319
  Serious: Yes (Other)
  Sender: FDA-Public Use
  Company Number: 2006BH013422

PATIENT
  Sex: 0

DRUGS (1)
  1. HEPARIN SODIUM [Suspect]
     Indication: THROMBOSIS PROPHYLAXIS
     Dosage: IV
     Route: 042

REACTIONS (2)
  - MEDICATION ERROR [None]
  - OVERDOSE [None]
